FAERS Safety Report 17831036 (Version 5)
Quarter: 2020Q3

REPORT INFORMATION
  Report Type: Report from Study
  Country: GB (occurrence: GB)
  Receive Date: 20200527
  Receipt Date: 20200716
  Transmission Date: 20201103
  Serious: Yes (Other)
  Sender: FDA-Public Use
  Company Number: GB-PFIZER INC-2020202312

PATIENT
  Age: 45 Year
  Sex: Female

DRUGS (2)
  1. IMRALDI [Interacting]
     Active Substance: ADALIMUMAB
     Indication: PSORIATIC ARTHROPATHY
     Dosage: 40 MG, CYCLIC (EVERY 2 WEEKS)
     Route: 058
     Dates: start: 20191010
  2. METHOTREXATE SODIUM. [Suspect]
     Active Substance: METHOTREXATE SODIUM
     Dosage: UNKNOWN
     Route: 065

REACTIONS (12)
  - Headache [Unknown]
  - Furuncle [Unknown]
  - Immunodeficiency [Unknown]
  - Frustration tolerance decreased [Unknown]
  - Depressed mood [Unknown]
  - Ear infection [Unknown]
  - Drug interaction [Unknown]
  - Ulcer [Unknown]
  - Abscess oral [Unknown]
  - Infection [Unknown]
  - Visual impairment [Not Recovered/Not Resolved]
  - Tooth abscess [Unknown]
